FAERS Safety Report 9219595 (Version 1)
Quarter: 2013Q2

REPORT INFORMATION
  Report Type: Spontaneous
  Country: IN (occurrence: IN)
  Receive Date: 20130409
  Receipt Date: 20130409
  Transmission Date: 20140414
  Serious: Yes (Other)
  Sender: FDA-Public Use
  Company Number: IN-ROCHE-1206712

PATIENT
  Age: 40 Year
  Sex: Male
  Weight: 75 kg

DRUGS (3)
  1. METALYSE [Suspect]
     Indication: ACUTE MYOCARDIAL INFARCTION
     Route: 042
     Dates: start: 20110307, end: 20110307
  2. TIROFIBAN [Concomitant]
  3. ENOXAPARIN [Concomitant]

REACTIONS (1)
  - Electrocardiogram ST segment elevation [Recovered/Resolved]
